FAERS Safety Report 12304733 (Version 1)
Quarter: 2016Q2

REPORT INFORMATION
  Report Type: Spontaneous
  Country: ES (occurrence: ES)
  Receive Date: 20160426
  Receipt Date: 20160426
  Transmission Date: 20160815
  Serious: Yes (Other)
  Sender: FDA-Public Use
  Company Number: ES-AUROBINDO-AUR-APL-2016-04806

PATIENT
  Age: 44 Year
  Sex: Female

DRUGS (2)
  1. LORMETAZEPAM [Concomitant]
     Active Substance: LORMETAZEPAM
     Indication: BACK PAIN
     Dosage: UNK
     Route: 065
  2. PARACETAMOL [Suspect]
     Active Substance: ACETAMINOPHEN
     Indication: BACK PAIN
     Dosage: UNK, 3-4 GRAMS DAILY
     Route: 065

REACTIONS (6)
  - Renal failure [Recovered/Resolved]
  - Overdose [Recovered/Resolved]
  - Hepatic encephalopathy [Recovered/Resolved]
  - Toxicity to various agents [Recovered/Resolved]
  - Haemodialysis [None]
  - Acute kidney injury [Recovered/Resolved]
